APPROVED DRUG PRODUCT: METOPROLOL TARTRATE
Active Ingredient: METOPROLOL TARTRATE
Strength: 75MG
Dosage Form/Route: TABLET;ORAL
Application: A076704 | Product #005 | TE Code: AB
Applicant: MYLAN PHARMACEUTICALS INC
Approved: Mar 18, 2015 | RLD: No | RS: No | Type: RX